FAERS Safety Report 7704738-X (Version None)
Quarter: 2011Q3

REPORT INFORMATION
  Report Type: 
  Country: None (occurrence: None)
  Receive Date: 20110823
  Receipt Date: 20110817
  Transmission Date: 20111222
  Serious: Yes (Other)
  Sender: FDA-Public Use
  Company Number: US-BRISTOL-MYERS SQUIBB COMPANY-15980550

PATIENT
  Sex: Female

DRUGS (1)
  1. ORENCIA [Suspect]
     Indication: RHEUMATOID ARTHRITIS
     Dosage: LAST INF ON MAY2011 AT A DOSE OF 1250MG RECEIVED FOR AN YEAR

REACTIONS (2)
  - PULMONARY HYPERTENSION [None]
  - RHEUMATOID LUNG [None]
